FAERS Safety Report 25350776 (Version 1)
Quarter: 2025Q2

REPORT INFORMATION
  Report Type: Spontaneous
  Country: CA (occurrence: CA)
  Receive Date: 20250523
  Receipt Date: 20250523
  Transmission Date: 20250717
  Serious: Yes (Hospitalization, Other)
  Sender: CELLTRION
  Company Number: CA-PFIZER INC-PV202400005810

PATIENT

DRUGS (14)
  1. INFLECTRA [Suspect]
     Active Substance: INFLIXIMAB-DYYB
     Indication: Colitis ulcerative
     Route: 042
     Dates: start: 20220628, end: 20221216
  2. INFLECTRA [Suspect]
     Active Substance: INFLIXIMAB-DYYB
     Route: 042
     Dates: start: 20230210, end: 20230727
  3. INFLECTRA [Suspect]
     Active Substance: INFLIXIMAB-DYYB
     Route: 042
     Dates: start: 20230908
  4. INFLECTRA [Suspect]
     Active Substance: INFLIXIMAB-DYYB
     Route: 042
     Dates: start: 20231129
  5. INFLECTRA [Suspect]
     Active Substance: INFLIXIMAB-DYYB
     Route: 042
     Dates: start: 20240404
  6. INFLECTRA [Suspect]
     Active Substance: INFLIXIMAB-DYYB
     Route: 042
     Dates: start: 20240516
  7. INFLECTRA [Suspect]
     Active Substance: INFLIXIMAB-DYYB
     Route: 042
     Dates: start: 20240627
  8. INFLECTRA [Suspect]
     Active Substance: INFLIXIMAB-DYYB
     Route: 042
     Dates: start: 20240808
  9. INFLECTRA [Suspect]
     Active Substance: INFLIXIMAB-DYYB
     Route: 042
     Dates: start: 20240918
  10. INFLECTRA [Suspect]
     Active Substance: INFLIXIMAB-DYYB
     Route: 042
     Dates: start: 20250127
  11. INFLECTRA [Suspect]
     Active Substance: INFLIXIMAB-DYYB
     Route: 042
     Dates: start: 20250310
  12. INFLECTRA [Suspect]
     Active Substance: INFLIXIMAB-DYYB
     Route: 042
     Dates: start: 20250507
  13. DOXYCYCLINE [Concomitant]
     Active Substance: DOXYCYCLINE
     Dates: start: 20240718, end: 20240728
  14. MAGNESIUM [Concomitant]
     Active Substance: MAGNESIUM
     Dates: start: 20240718, end: 20240728

REACTIONS (17)
  - Muscle spasms [Unknown]
  - Gastrooesophageal reflux disease [Unknown]
  - Joint abscess [Recovered/Resolved]
  - Subcutaneous abscess [Recovering/Resolving]
  - Drug ineffective [Unknown]
  - Cardiomegaly [Unknown]
  - Condition aggravated [Recovering/Resolving]
  - Dehydration [Unknown]
  - Dysphagia [Recovering/Resolving]
  - General physical health deterioration [Unknown]
  - Haematological infection [Unknown]
  - Fatigue [Unknown]
  - Nocturia [Not Recovered/Not Resolved]
  - Renal disorder [Unknown]
  - Sleep disorder due to a general medical condition [Not Recovered/Not Resolved]
  - Wound [Not Recovered/Not Resolved]
  - Heat stroke [Unknown]

NARRATIVE: CASE EVENT DATE: 20230101
